FAERS Safety Report 6323908-9 (Version None)
Quarter: 2009Q3

REPORT INFORMATION
  Report Type: 
  Country: None (occurrence: None)
  Receive Date: 20090824
  Receipt Date: 20090817
  Transmission Date: 20100115
  Serious: Yes (Hospitalization, Congenital Anomaly)
  Sender: FDA-Public Use
  Company Number: A0677809A

PATIENT
  Sex: Female
  Weight: 2.4 kg

DRUGS (9)
  1. PAXIL [Suspect]
     Dosage: 20MG PER DAY
     Dates: start: 19980101, end: 20050301
  2. CHILDREN'S MULTI VIT [Concomitant]
     Dates: start: 20060101
  3. PRENATAL NUTRIENTS [Concomitant]
     Indication: PREGNANCY
     Dates: start: 20011001, end: 20020101
  4. NICOTINE [Concomitant]
     Indication: SMOKING CESSATION THERAPY
     Dates: start: 20011201
  5. GUIATUSS AC [Concomitant]
     Dates: start: 20020101
  6. ZITHROMAX [Concomitant]
     Dates: start: 20020101
  7. ALBUTEROL [Concomitant]
     Dates: start: 20020101
  8. ALCOHOL [Concomitant]
  9. MARIJUANA [Concomitant]

REACTIONS (21)
  - APNOEA [None]
  - ATRIAL SEPTAL DEFECT [None]
  - BLADDER DISORDER [None]
  - BRONCHOPULMONARY DYSPLASIA [None]
  - CONGENITAL TERATOMA [None]
  - DEVELOPMENTAL DELAY [None]
  - DRUG EXPOSURE DURING PREGNANCY [None]
  - DYSPEPSIA [None]
  - GASTROINTESTINAL DISORDER [None]
  - HIP DYSPLASIA [None]
  - MICTURITION DISORDER [None]
  - NEUROGENIC BLADDER [None]
  - NEUROGENIC BOWEL [None]
  - PERSISTENT FOETAL CIRCULATION [None]
  - PREMATURE BABY [None]
  - RECTAL PROLAPSE [None]
  - RESPIRATORY DISTRESS [None]
  - SMALL FOR DATES BABY [None]
  - SPEECH DISORDER [None]
  - TERATOMA [None]
  - URINARY TRACT INFECTION [None]
